FAERS Safety Report 11102712 (Version 1)
Quarter: 2015Q2

REPORT INFORMATION
  Report Type: Spontaneous
  Country: CA (occurrence: CA)
  Receive Date: 20150511
  Receipt Date: 20150511
  Transmission Date: 20150821
  Serious: Yes (Hospitalization)
  Sender: FDA-Public Use
  Company Number: CA-TEVA-561326ACC

PATIENT
  Age: 83 Year
  Sex: Male
  Weight: 72 kg

DRUGS (13)
  1. LORAZEPAM. [Concomitant]
     Active Substance: LORAZEPAM
     Dosage: UNKNOWN FORM STRENGTH
     Route: 065
  2. PEGLYTE NOS [Concomitant]
     Dosage: UNKNOWN FORM STRENGTH
     Route: 065
  3. CYANOCOBALAMINE INJ. [Concomitant]
     Dosage: UNKNOWN FORM STRENGTH
     Route: 065
  4. DOCUSATE SODIUM. [Concomitant]
     Active Substance: DOCUSATE SODIUM
     Dosage: UNKNOWN FORM STRENGTH
     Route: 065
  5. DONEPEZIL [Concomitant]
     Active Substance: DONEPEZIL
     Dosage: UNKNOWN FORM STRENGTH
     Route: 065
  6. PANTOPRAZOLE SODIUM FOR INJECTION [Concomitant]
     Dosage: UNKNOWN FORM STRENGTH
     Route: 042
  7. PANTOPRAZOLE [Suspect]
     Active Substance: PANTOPRAZOLE SODIUM
     Indication: DYSPEPSIA
     Dosage: UNKNOWN FORM STRENGTH
     Route: 048
  8. CALCIUM [Concomitant]
     Active Substance: CALCIUM
     Dosage: UNKNOWN FORM STRENGTH
     Route: 065
  9. TAMSULOSIN [Concomitant]
     Active Substance: TAMSULOSIN
     Dosage: UNKNOWN FORM STRENGTH
     Route: 065
  10. PANTOPRAZOLE [Suspect]
     Active Substance: PANTOPRAZOLE SODIUM
     Indication: ABDOMINAL PAIN
  11. CHOLECALCIFEROL [Concomitant]
     Active Substance: CHOLECALCIFEROL
     Dosage: UNKNOWN FORM STRENGTH
     Route: 065
  12. RISPERIDONE. [Concomitant]
     Active Substance: RISPERIDONE
     Dosage: UNKNOWN FORM STRENGTH
     Route: 065
  13. VENLAFAXINE XR [Concomitant]
     Active Substance: VENLAFAXINE HYDROCHLORIDE
     Dosage: UNKNOWN FORM STRENGTH
     Route: 065

REACTIONS (2)
  - Blood creatinine increased [Recovered/Resolved]
  - Loss of consciousness [Recovered/Resolved]
